FAERS Safety Report 8327075 (Version 3)
Quarter: 2015Q1

REPORT INFORMATION
  Report Type: Report from Study
  Country: US (occurrence: US)
  Receive Date: 20120109
  Receipt Date: 20150303
  Transmission Date: 20150721
  Serious: Yes (Death, Hospitalization, Other)
  Sender: FDA-Public Use
  Company Number: US-ROCHE-1028226

PATIENT
  Sex: Female
  Weight: 81.72 kg

DRUGS (12)
  1. AVASTIN [Suspect]
     Active Substance: BEVACIZUMAB
     Indication: OVARIAN CANCER RECURRENT
     Route: 042
     Dates: start: 20070122
  2. CARBOPLATIN. [Suspect]
     Active Substance: CARBOPLATIN
     Indication: PRODUCT USED FOR UNKNOWN INDICATION
     Route: 065
  3. NEULASTA [Concomitant]
     Active Substance: PEGFILGRASTIM
     Route: 065
  4. CISPLATIN. [Concomitant]
     Active Substance: CISPLATIN
  5. ANZEMET [Concomitant]
     Active Substance: DOLASETRON MESYLATE
     Route: 042
  6. TOPOTECAN [Suspect]
     Active Substance: TOPOTECAN\TOPOTECAN HYDROCHLORIDE
     Indication: PRODUCT USED FOR UNKNOWN INDICATION
     Route: 042
  7. DECADRON [Concomitant]
     Active Substance: DEXAMETHASONE
  8. AVASTIN [Suspect]
     Active Substance: BEVACIZUMAB
     Route: 042
  9. ARANESP [Concomitant]
     Active Substance: DARBEPOETIN ALFA
     Route: 065
  10. TAXOTERE [Concomitant]
     Active Substance: DOCETAXEL
     Route: 065
  11. HEPARIN [Concomitant]
     Active Substance: HEPARIN SODIUM
     Route: 042
  12. DOXIL [Concomitant]
     Active Substance: DOXORUBICIN HYDROCHLORIDE
     Route: 065

REACTIONS (26)
  - Hypertension [Recovered/Resolved]
  - Metastases to liver [Unknown]
  - Vomiting [Unknown]
  - Dysphagia [Unknown]
  - Abdominal pain [Unknown]
  - General physical health deterioration [Unknown]
  - Neuropathy peripheral [Unknown]
  - Blood count abnormal [Unknown]
  - Carbohydrate antigen 125 increased [Unknown]
  - Pyrexia [Unknown]
  - Weight decreased [Unknown]
  - Peritoneal disorder [Unknown]
  - Drug hypersensitivity [Unknown]
  - Disease progression [Fatal]
  - Migraine [Unknown]
  - Chest pain [Unknown]
  - Anaemia [Unknown]
  - Nausea [Unknown]
  - Cytopenia [Unknown]
  - Upper respiratory tract infection [Unknown]
  - Fatigue [Unknown]
  - Liver disorder [Unknown]
  - Off label use [Unknown]
  - Asthenia [Unknown]
  - Jaundice [Unknown]
  - Decreased appetite [Unknown]
